FAERS Safety Report 7407470-5 (Version None)
Quarter: 2011Q2

REPORT INFORMATION
  Report Type: 
  Country: None (occurrence: None)
  Receive Date: 20110411
  Receipt Date: 20110404
  Transmission Date: 20111010
  Serious: Yes (Hospitalization)
  Sender: FDA-Public Use
  Company Number: JP-BRISTOL-MYERS SQUIBB COMPANY-15652944

PATIENT
  Age: 60 Year
  Sex: Male

DRUGS (2)
  1. CISPLATIN [Suspect]
     Indication: SMALL CELL LUNG CANCER STAGE UNSPECIFIED
     Route: 041
     Dates: start: 20110402, end: 20110402
  2. IRINOTECAN HCL [Suspect]
     Dates: start: 20110402

REACTIONS (1)
  - GASTROINTESTINAL PERFORATION [None]
